FAERS Safety Report 6829051-4 (Version None)
Quarter: 2010Q3

REPORT INFORMATION
  Report Type: 
  Country: None (occurrence: None)
  Receive Date: 20100709
  Receipt Date: 20070226
  Transmission Date: 20110219
  Serious: No
  Sender: FDA-Public Use
  Company Number: US-PFIZER INC-2007016107

PATIENT
  Sex: Female

DRUGS (11)
  1. CHANTIX [Suspect]
     Indication: SMOKING CESSATION THERAPY
     Dates: start: 20070212, end: 20070226
  2. PRAVACHOL [Concomitant]
  3. OMACOR [Concomitant]
  4. NORVASC [Concomitant]
  5. NEXIUM [Concomitant]
  6. TOPAMAX [Concomitant]
  7. ZYRTEC [Concomitant]
  8. VALIUM [Concomitant]
  9. SONATA [Concomitant]
     Indication: SLEEP DISORDER
  10. VITAMIN C [Concomitant]
  11. ADVAIR DISKUS 100/50 [Concomitant]
     Indication: ALLERGY TO ANIMAL
     Route: 055

REACTIONS (4)
  - ABDOMINAL DISTENSION [None]
  - CONSTIPATION [None]
  - NAUSEA [None]
  - WEIGHT INCREASED [None]
